FAERS Safety Report 6962246-8 (Version None)
Quarter: 2010Q3

REPORT INFORMATION
  Report Type: 
  Country: None (occurrence: None)
  Receive Date: 20100901
  Receipt Date: 20100901
  Transmission Date: 20110219
  Serious: Yes (Hospitalization, Other)
  Sender: FDA-Public Use
  Company Number: None

PATIENT
  Sex: Male
  Weight: 104.3273 kg

DRUGS (1)
  1. CRESTOR [Suspect]
     Indication: BLOOD CHOLESTEROL INCREASED
     Dosage: ONE DAILY DAILY PO
     Route: 048
     Dates: start: 20050202, end: 20080929

REACTIONS (3)
  - APPARENT DEATH [None]
  - DIABETES MELLITUS [None]
  - PANCREATITIS NECROTISING [None]
